FAERS Safety Report 8719559 (Version 2)
Quarter: 2013Q4

REPORT INFORMATION
  Report Type: Spontaneous
  Country: US (occurrence: US)
  Receive Date: 20120813
  Receipt Date: 20131101
  Transmission Date: 20140711
  Serious: No
  Sender: FDA-Public Use
  Company Number: US-009507513-2012SP030602

PATIENT
  Age: 65 Year
  Sex: Male
  Weight: 72.56 kg

DRUGS (3)
  1. ZEGERID OTC CAPSULES [Suspect]
     Indication: DYSPEPSIA
     Dosage: 20 MG, ONCE
     Route: 048
     Dates: start: 20120514
  2. ZEGERID OTC CAPSULES [Suspect]
     Dosage: 20 MG, ONCE
     Route: 048
     Dates: start: 20120520
  3. METOPROLOL [Suspect]
     Indication: HEART RATE IRREGULAR
     Dosage: UNK UNK, UNKNOWN

REACTIONS (1)
  - Heart rate increased [Recovered/Resolved]
